FAERS Safety Report 9254796 (Version 1)
Quarter: 2013Q2

REPORT INFORMATION
  Report Type: Spontaneous
  Country: US (occurrence: US)
  Receive Date: 20130425
  Receipt Date: 20130425
  Transmission Date: 20140414
  Serious: Yes (Hospitalization)
  Sender: FDA-Public Use
  Company Number: US-PFIZER INC-2012330177

PATIENT
  Age: 60 Year
  Sex: Female
  Weight: 78.01 kg

DRUGS (15)
  1. LYRICA [Suspect]
     Indication: FIBROMYALGIA
     Dosage: 50 MG, 2X/DAY
     Route: 048
     Dates: start: 2008
  2. NEURONTIN [Concomitant]
     Dosage: 100 MG, UNK
  3. EFFEXOR XR [Concomitant]
     Dosage: 75 MG, UNK
  4. ACCUPRIL [Concomitant]
     Dosage: 5 MG, UNK
  5. QUINAPRIL [Concomitant]
     Indication: HYPERTENSION
     Dosage: 5 MG DAILY
  6. ACTOS [Concomitant]
     Indication: DIABETES MELLITUS
     Dosage: 30 MG, 2X/DAY
  7. KEFLEX [Concomitant]
     Dosage: 500 MG, UNK
  8. MACROBID [Concomitant]
     Dosage: 100 MG, UNK
  9. ULTRAM [Concomitant]
     Dosage: 50 MG, UNK
  10. PYRIDIUM [Concomitant]
     Dosage: 100 MG, UNK
  11. MAG-OX [Concomitant]
     Dosage: 400 MG, UNK
  12. REGLAN [Concomitant]
     Dosage: 10 MG, UNK
  13. ZOCOR [Concomitant]
     Dosage: 40 MG, UNK
  14. ELAVIL [Concomitant]
     Dosage: 25 MG, UNK
  15. AMARYL [Concomitant]
     Dosage: 4 MG, UNK

REACTIONS (4)
  - Cholecystitis [Unknown]
  - Cholelithiasis [Unknown]
  - Malaise [Unknown]
  - Vomiting [Unknown]
